FAERS Safety Report 25575344 (Version 2)
Quarter: 2025Q3

REPORT INFORMATION
  Report Type: Spontaneous
  Country: GB (occurrence: GB)
  Receive Date: 20250718
  Receipt Date: 20250722
  Transmission Date: 20251020
  Serious: Yes (Life-Threatening, Other)
  Sender: TEVA
  Company Number: None

PATIENT
  Age: 29 Year
  Sex: Female
  Weight: 56 kg

DRUGS (4)
  1. ATORVASTATIN [Suspect]
     Active Substance: ATORVASTATIN
     Indication: Blood cholesterol
     Dosage: AT NIGHT
     Route: 065
     Dates: start: 20250525, end: 20250703
  2. TOFACITINIB [Concomitant]
     Active Substance: TOFACITINIB
     Indication: Juvenile idiopathic arthritis
     Dates: start: 20240901
  3. NORTRIPTYLINE [Concomitant]
     Active Substance: NORTRIPTYLINE
     Indication: Depression
     Dates: start: 20250201
  4. CELEBREX [Concomitant]
     Active Substance: CELECOXIB
     Indication: Juvenile idiopathic arthritis
     Dates: start: 20130101

REACTIONS (4)
  - Suicidal ideation [Unknown]
  - Menstruation delayed [Recovering/Resolving]
  - Major depression [Recovered/Resolved with Sequelae]
  - Anxiety [Recovering/Resolving]

NARRATIVE: CASE EVENT DATE: 20250605
